FAERS Safety Report 25025847 (Version 1)
Quarter: 2025Q1

REPORT INFORMATION
  Report Type: Spontaneous
  Country: US (occurrence: US)
  Receive Date: 20250301
  Receipt Date: 20250301
  Transmission Date: 20250409
  Serious: Yes (Hospitalization, Other)
  Sender: NOVO NORDISK
  Company Number: US-NOVOPROD-1268497

PATIENT
  Age: 43 Year
  Sex: Female
  Weight: 108.39 kg

DRUGS (4)
  1. OZEMPIC [Suspect]
     Active Substance: SEMAGLUTIDE
     Indication: Type 2 diabetes mellitus
     Dosage: 0.25 MG, QW
     Route: 058
     Dates: start: 20190519, end: 202011
  2. OZEMPIC [Suspect]
     Active Substance: SEMAGLUTIDE
     Indication: Obesity
     Route: 058
     Dates: end: 20210910
  3. VICTOZA [Suspect]
     Active Substance: LIRAGLUTIDE
     Indication: Obesity
  4. VICTOZA [Suspect]
     Active Substance: LIRAGLUTIDE
     Indication: Type 2 diabetes mellitus
     Dosage: 0.6 MG QW
     Route: 058
     Dates: start: 20160401, end: 20190501

REACTIONS (7)
  - Acute kidney injury [Recovered/Resolved]
  - Impaired gastric emptying [Not Recovered/Not Resolved]
  - Post-traumatic stress disorder [Unknown]
  - Constipation [Recovered/Resolved]
  - Decreased appetite [Not Recovered/Not Resolved]
  - Diarrhoea [Not Recovered/Not Resolved]
  - Dyspepsia [Not Recovered/Not Resolved]

NARRATIVE: CASE EVENT DATE: 20201201
